FAERS Safety Report 12816851 (Version 1)
Quarter: 2016Q4

REPORT INFORMATION
  Report Type: Spontaneous
  Country: US (occurrence: US)
  Receive Date: 20161005
  Receipt Date: 20161005
  Transmission Date: 20170207
  Serious: No
  Sender: FDA-Public Use
  Company Number: None

PATIENT
  Age: 67 Year
  Sex: Female
  Weight: 69.75 kg

DRUGS (9)
  1. PRILOSEC [Concomitant]
     Active Substance: OMEPRAZOLE MAGNESIUM
  2. RECLAST [Suspect]
     Active Substance: ZOLEDRONIC ACID
     Indication: OSTEOPOROSIS
     Dates: start: 20160823, end: 20160823
  3. DOXYLAMINE [Concomitant]
     Active Substance: DOXYLAMINE
  4. VITAMIN D [Concomitant]
     Active Substance: CHOLECALCIFEROL
  5. RANITIDINE. [Concomitant]
     Active Substance: RANITIDINE
  6. MONTELUCAST [Concomitant]
     Active Substance: MONTELUKAST SODIUM
  7. CALCIUM [Concomitant]
     Active Substance: CALCIUM
  8. MELOXICAM. [Concomitant]
     Active Substance: MELOXICAM
  9. SIMVASTATIN. [Concomitant]
     Active Substance: SIMVASTATIN

REACTIONS (8)
  - Conjunctivitis [None]
  - Pain [None]
  - Hepatic enzyme increased [None]
  - Myalgia [None]
  - Chills [None]
  - Herpes ophthalmic [None]
  - Fatigue [None]
  - Pyrexia [None]

NARRATIVE: CASE EVENT DATE: 20160823
